FAERS Safety Report 8597730-7 (Version None)
Quarter: 2012Q3

REPORT INFORMATION
  Report Type: 
  Country: None (occurrence: None)
  Receive Date: 20120816
  Receipt Date: 20120810
  Transmission Date: 20120928
  Serious: Yes (Other)
  Sender: FDA-Public Use
  Company Number: PHEH2012US015912

PATIENT
  Sex: Female

DRUGS (4)
  1. EFFEXOR [Concomitant]
  2. PAXIL [Concomitant]
  3. ZOMETA [Suspect]
     Dosage: 1 MG, UNK
     Dates: start: 20070403, end: 20110418
  4. FEMARA [Concomitant]
     Dosage: 2.5 MG, QD

REACTIONS (11)
  - ABDOMINAL MASS [None]
  - EPIGASTRIC DISCOMFORT [None]
  - LIP AND/OR ORAL CAVITY CANCER [None]
  - WEIGHT INCREASED [None]
  - AXILLARY MASS [None]
  - NAUSEA [None]
  - ABDOMINAL DISTENSION [None]
  - ARTHRALGIA [None]
  - OSTEONECROSIS OF JAW [None]
  - COLITIS [None]
  - ABDOMINAL HERNIA [None]
